FAERS Safety Report 16792876 (Version 1)
Quarter: 2019Q3

REPORT INFORMATION
  Report Type: Report from Study
  Country: US (occurrence: US)
  Receive Date: 20190910
  Receipt Date: 20190910
  Transmission Date: 20191005
  Serious: Yes (Other)
  Sender: FDA-Public Use
  Company Number: US-BEH-2019106492

PATIENT
  Age: 41 Year
  Sex: Female
  Weight: 106.58 kg

DRUGS (2)
  1. HAEGARDA [Suspect]
     Active Substance: HUMAN C1-ESTERASE INHIBITOR
     Indication: HEREDITARY ANGIOEDEMA
     Dosage: UNK, BIW
     Route: 065
  2. HAEGARDA [Suspect]
     Active Substance: HUMAN C1-ESTERASE INHIBITOR
     Indication: PROPHYLAXIS

REACTIONS (13)
  - Hereditary angioedema [Unknown]
  - Vomiting [Unknown]
  - Urticaria [Unknown]
  - Hereditary angioedema [Unknown]
  - Systemic lupus erythematosus rash [Unknown]
  - Renal disorder [Unknown]
  - Urinary tract infection [Unknown]
  - Weight increased [Unknown]
  - Pain [Unknown]
  - Rash [Unknown]
  - Pyrexia [Unknown]
  - Headache [Unknown]
  - Fatigue [Unknown]

NARRATIVE: CASE EVENT DATE: 20180301
